FAERS Safety Report 19322075 (Version 2)
Quarter: 2021Q3

REPORT INFORMATION
  Report Type: Report from Study
  Country: JP (occurrence: JP)
  Receive Date: 20210528
  Receipt Date: 20210712
  Transmission Date: 20211014
  Serious: Yes (Other)
  Sender: FDA-Public Use
  Company Number: JP-ALXN-A202105856AA

PATIENT
  Age: 8 Year
  Sex: Male
  Weight: 20 kg

DRUGS (13)
  1. MIYA?BM [Concomitant]
     Active Substance: CLOSTRIDIUM BUTYRICUM SPORES STRAIN M-55
     Indication: PROPHYLAXIS AGAINST DIARRHOEA
     Dosage: 0.6 G, TID
     Route: 048
     Dates: start: 20121126
  2. KAYEXALATE [Concomitant]
     Active Substance: SODIUM POLYSTYRENE SULFONATE
     Indication: ATYPICAL HAEMOLYTIC URAEMIC SYNDROME
     Dosage: 1.5 G, BID
     Route: 048
     Dates: start: 20121126
  3. SOLIRIS [Suspect]
     Active Substance: ECULIZUMAB
     Indication: ATYPICAL HAEMOLYTIC URAEMIC SYNDROME
     Dosage: 300 MG, UNK
     Route: 042
     Dates: start: 20121114
  4. SOLIRIS [Suspect]
     Active Substance: ECULIZUMAB
     Dosage: 600 UNK, UNK
     Dates: end: 20210506
  5. CEFZON                             /01130201/ [Concomitant]
     Active Substance: CEFDINIR
     Indication: INFECTION PROPHYLAXIS
     Dosage: 9 MG, QD
     Route: 048
     Dates: start: 20121203
  6. NU?LOTAN [Concomitant]
     Active Substance: LOSARTAN POTASSIUM
     Indication: ATYPICAL HAEMOLYTIC URAEMIC SYNDROME
     Dosage: 15 MG, BID
     Route: 048
     Dates: start: 20121024
  7. URSO [Concomitant]
     Active Substance: URSODIOL
     Indication: BILE DUCT STONE
     Dosage: 60 MG, TID
     Route: 048
     Dates: start: 20121029
  8. SYAKUYAKUKANZOUTOU [Concomitant]
     Active Substance: HERBALS
     Indication: BILE DUCT STONE
     Dosage: 1.5 G, TID
     Route: 048
     Dates: start: 20130119
  9. ULTOMIRIS [Suspect]
     Active Substance: RAVULIZUMAB-CWVZ
     Dosage: 2100 MG, Q56
     Route: 042
     Dates: start: 20210602
  10. RENIVACE [Concomitant]
     Active Substance: ENALAPRIL
     Indication: ATYPICAL HAEMOLYTIC URAEMIC SYNDROME
     Dosage: 1 MG, QD
     Route: 048
     Dates: start: 20121030
  11. SEPAMIT [Concomitant]
     Active Substance: NIFEDIPINE
     Indication: ATYPICAL HAEMOLYTIC URAEMIC SYNDROME
     Dosage: 12 MG, BID
     Route: 048
     Dates: start: 20121115
  12. ULTOMIRIS [Suspect]
     Active Substance: RAVULIZUMAB-CWVZ
     Indication: ATYPICAL HAEMOLYTIC URAEMIC SYNDROME
     Dosage: 900 MG, Q2W
     Route: 042
     Dates: start: 20210519
  13. COSPANON [Concomitant]
     Active Substance: FLOPROPIONE
     Indication: BILE DUCT STONE
     Dosage: 24 MG, TID
     Route: 048
     Dates: start: 20130119

REACTIONS (2)
  - Rhinorrhoea [Recovering/Resolving]
  - Cough [Recovering/Resolving]

NARRATIVE: CASE EVENT DATE: 20210519
